FAERS Safety Report 13704607 (Version 1)
Quarter: 2017Q2

REPORT INFORMATION
  Report Type: Spontaneous
  Country: US (occurrence: US)
  Receive Date: 20170629
  Receipt Date: 20170629
  Transmission Date: 20170830
  Serious: Yes (Life-Threatening, Disabling, Other)
  Sender: FDA-Public Use
  Company Number: None

PATIENT
  Age: 80 Year
  Sex: Female
  Weight: 58.5 kg

DRUGS (12)
  1. NORVASC [Suspect]
     Active Substance: AMLODIPINE BESYLATE
     Indication: BLOOD PRESSURE MEASUREMENT
     Dates: start: 20150328
  2. LOW DOSE ASPIRIN [Concomitant]
     Active Substance: ASPIRIN
  3. CENTRUM SILVER [Concomitant]
     Active Substance: MINERALS\VITAMINS
  4. BIOTIN [Concomitant]
     Active Substance: BIOTIN
  5. MILK THISTLE [Concomitant]
     Active Substance: MILK THISTLE
  6. POWERADE ZERO [Concomitant]
  7. AYR [Concomitant]
  8. COZAAR [Concomitant]
     Active Substance: LOSARTAN POTASSIUM
  9. CRANBERRY. [Concomitant]
     Active Substance: CRANBERRY
  10. CALCIUM + D3 [Concomitant]
     Active Substance: CALCIUM\CHOLECALCIFEROL
  11. TUMS [Concomitant]
     Active Substance: CALCIUM CARBONATE
  12. MAGNESIUM [Concomitant]
     Active Substance: MAGNESIUM

REACTIONS (25)
  - Formication [None]
  - Chest discomfort [None]
  - Musculoskeletal pain [None]
  - Blood uric acid abnormal [None]
  - Dysuria [None]
  - Fatigue [None]
  - Asthenia [None]
  - Balance disorder [None]
  - Head injury [None]
  - Diarrhoea [None]
  - Peripheral swelling [None]
  - Muscle spasms [None]
  - Dysphonia [None]
  - Pallor [None]
  - Pruritus [None]
  - Eye infection [None]
  - Tinnitus [None]
  - Hypersensitivity [None]
  - Rash [None]
  - Urinary tract infection [None]
  - Hip fracture [None]
  - Cough [None]
  - Fall [None]
  - Neck pain [None]
  - Dyskinesia [None]

NARRATIVE: CASE EVENT DATE: 20150328
